FAERS Safety Report 6196076-4 (Version None)
Quarter: 2009Q2

REPORT INFORMATION
  Report Type: 
  Country: None (occurrence: None)
  Receive Date: 20090520
  Receipt Date: 20070814
  Transmission Date: 20091009
  Serious: Yes (Hospitalization, Other)
  Sender: FDA-Public Use
  Company Number: US-ASTRAZENECA-2007UW12260

PATIENT
  Age: 41 Year
  Sex: Female
  Weight: 92.5 kg

DRUGS (36)
  1. SEROQUEL [Suspect]
     Indication: DEPRESSION
     Dosage: 100 MG
     Route: 048
     Dates: start: 19990103, end: 20050101
  2. SEROQUEL [Suspect]
     Indication: SLEEP DISORDER
     Dosage: 100 MG
     Route: 048
     Dates: start: 19990103, end: 20050101
  3. SEROQUEL [Suspect]
     Dosage: 25-100 MG
     Route: 048
     Dates: start: 19990301
  4. SEROQUEL [Suspect]
     Dosage: 25-100 MG
     Route: 048
     Dates: start: 19990301
  5. MIRTAZAPINE [Concomitant]
     Route: 048
  6. FAMOTIDINE [Concomitant]
     Route: 048
  7. MINOXIDIL [Concomitant]
     Route: 048
  8. BUPROPION HCL [Concomitant]
     Route: 048
  9. ARICEPT [Concomitant]
     Route: 048
  10. MEGESTROL ACETATE [Concomitant]
     Dosage: 400MG/10ML
     Route: 065
  11. HUMULIN N [Concomitant]
     Dosage: 5 - 25 UNIT
     Route: 058
  12. PROTONIX [Concomitant]
     Route: 048
  13. CLONIDINE [Concomitant]
     Route: 048
  14. WELCHOL [Concomitant]
     Route: 048
  15. DIATX [Concomitant]
     Route: 048
  16. FUROSEMIDE [Concomitant]
     Route: 048
  17. ULTRACET [Concomitant]
     Route: 048
  18. METOCLOPRAMIDE [Concomitant]
     Dosage: 5 MG - 15 MG
     Route: 048
  19. INDERAL [Concomitant]
     Dosage: 80 - 120 MG
     Route: 048
  20. TRIAMCINOLONE [Concomitant]
     Route: 065
  21. LEVOXYL [Concomitant]
     Route: 065
  22. PRIMIDONE [Concomitant]
     Route: 065
  23. SONATA [Concomitant]
     Route: 065
  24. ZOLOFT [Concomitant]
     Route: 065
  25. EFFEXOR [Concomitant]
     Route: 065
  26. MARINOL [Concomitant]
     Dosage: 2.5 MG - 5 MG
     Route: 048
  27. CITALOPRAM HYDROBROMIDE [Concomitant]
     Route: 048
  28. LABETALOL HCL [Concomitant]
     Route: 048
  29. ASPIRIN [Concomitant]
     Route: 048
  30. ZELNORM [Concomitant]
     Route: 048
  31. PROVIGIL [Concomitant]
     Route: 048
  32. TIAZAC [Concomitant]
     Dosage: 120MG - 220 MG
     Route: 048
  33. ZANTAC [Concomitant]
     Route: 048
  34. DOCUSATE [Concomitant]
     Route: 065
  35. HYDRALAZINE HCL [Concomitant]
     Dosage: 25 MG - 50 MG
     Route: 048
  36. PREVACID [Concomitant]
     Route: 048

REACTIONS (28)
  - AZOTAEMIA [None]
  - BRONCHITIS [None]
  - CONCUSSION [None]
  - CONTUSION [None]
  - DEMENTIA [None]
  - DIABETIC GASTROPARESIS [None]
  - DYSPHAGIA [None]
  - EAR PAIN [None]
  - GASTRITIS [None]
  - GASTROENTERITIS [None]
  - HAEMATEMESIS [None]
  - HAEMATOMA [None]
  - HYPERGLYCAEMIA [None]
  - HYPOKALAEMIA [None]
  - HYPOTENSION [None]
  - MALLORY-WEISS SYNDROME [None]
  - MALNUTRITION [None]
  - OEDEMA PERIPHERAL [None]
  - OESOPHAGITIS [None]
  - OPEN WOUND [None]
  - OTITIS EXTERNA [None]
  - PERITONITIS [None]
  - RENAL FAILURE CHRONIC [None]
  - SINUSITIS [None]
  - SYNCOPE [None]
  - TARDIVE DYSKINESIA [None]
  - TYPE 2 DIABETES MELLITUS [None]
  - VAGINAL HAEMORRHAGE [None]
